FAERS Safety Report 4339846-7 (Version None)
Quarter: 2004Q2

REPORT INFORMATION
  Report Type: 
  Country: None (occurrence: None)
  Receive Date: 20040412
  Receipt Date: 20040326
  Transmission Date: 20050107
  Serious: Yes (Other)
  Sender: FDA-Public Use
  Company Number: 2004GB00811

PATIENT

DRUGS (2)
  1. SEROQUEL [Suspect]
  2. CLOZARIL [Suspect]

REACTIONS (1)
  - NEUTROPENIA [None]
